FAERS Safety Report 8742920 (Version 2)
Quarter: 2012Q4

REPORT INFORMATION
  Report Type: 
  Country: DE (occurrence: DE)
  Receive Date: 20120824
  Receipt Date: 20121120
  Transmission Date: 20130627
  Serious: Yes (Other)
  Sender: FDA-Public Use
  Company Number: DE-ELI_LILLY_AND_COMPANY-DE201208004707

PATIENT
  Age: 36 Year
  Sex: Male

DRUGS (2)
  1. CYMBALTA [Suspect]
     Indication: DEPRESSED MOOD
     Dosage: 30 mg, qd
     Route: 048
     Dates: start: 201202, end: 201208
  2. ANAESTHETICS [Concomitant]
     Dosage: UNK
     Dates: start: 20120811, end: 20120811

REACTIONS (7)
  - Accident [Unknown]
  - Surgery [Unknown]
  - Depressed level of consciousness [Unknown]
  - Drug withdrawal syndrome [Unknown]
  - Vertigo positional [Unknown]
  - Headache [Unknown]
  - Intentional drug misuse [Unknown]
